FAERS Safety Report 21181553 (Version 1)
Quarter: 2022Q3

REPORT INFORMATION
  Report Type: Spontaneous
  Country: US (occurrence: US)
  Receive Date: 20220806
  Receipt Date: 20220806
  Transmission Date: 20221027
  Serious: No
  Sender: FDA-Public Use
  Company Number: US-SA-SAC20220803001109

PATIENT
  Sex: Female

DRUGS (26)
  1. DUPIXENT [Suspect]
     Active Substance: DUPILUMAB
     Indication: Dermatitis atopic
     Dosage: 300 MG, QOW
     Route: 058
     Dates: start: 202201
  2. ZYRTEC [Concomitant]
     Active Substance: CETIRIZINE HYDROCHLORIDE
  3. WEGOVY [Concomitant]
     Active Substance: SEMAGLUTIDE
     Dosage: 1.7MG/0.75 PEN INJCTR
  4. VRAYLAR [Concomitant]
     Active Substance: CARIPRAZINE
  5. VRAYLAR [Concomitant]
     Active Substance: CARIPRAZINE
  6. VITAMIN K1 [Concomitant]
     Active Substance: PHYTONADIONE
     Dosage: 1MG/0.5ML AMPUL
  7. VITAMIN D2 [Concomitant]
     Active Substance: ERGOCALCIFEROL
  8. VITAMIN C [Concomitant]
     Active Substance: ASCORBIC ACID
  9. TRIAMCINOLONE ACETONIDE [Concomitant]
     Active Substance: TRIAMCINOLONE ACETONIDE
  10. TACROLIMUS [Concomitant]
     Active Substance: TACROLIMUS
  11. STRATTERA [Concomitant]
     Active Substance: ATOMOXETINE HYDROCHLORIDE
  12. PROAIR RESPICLICK [Concomitant]
     Active Substance: ALBUTEROL SULFATE
     Dosage: PROAIR RESPICLICK 90 MCG AER POW BA
  13. PRISTIQ EXTENDED-RELEASE [Concomitant]
     Active Substance: DESVENLAFAXINE SUCCINATE
  14. PERMETHRIN [Concomitant]
     Active Substance: PERMETHRIN
  15. OPZELURA [Concomitant]
     Active Substance: RUXOLITINIB PHOSPHATE
  16. HYDROXYZINE HYDROCHLORIDE [Concomitant]
     Active Substance: HYDROXYZINE HYDROCHLORIDE
  17. ATROPINE\DIPHENOXYLATE [Concomitant]
     Active Substance: ATROPINE\DIPHENOXYLATE
  18. VITAMINS NOS [Concomitant]
     Active Substance: VITAMINS
  19. CLONAZEPAM [Concomitant]
     Active Substance: CLONAZEPAM
  20. CLOBETASOL [Concomitant]
     Active Substance: CLOBETASOL
  21. BENADRYL ALLERGY [Concomitant]
     Active Substance: DIPHENHYDRAMINE HYDROCHLORIDE
  22. BELSOMRA [Concomitant]
     Active Substance: SUVOREXANT
  23. AMMONIUM LACTATE [Concomitant]
     Active Substance: AMMONIUM LACTATE
  24. ADVAIR HFA [Concomitant]
     Active Substance: FLUTICASONE PROPIONATE\SALMETEROL XINAFOATE
  25. VITAMIN D3 [Concomitant]
     Active Substance: CHOLECALCIFEROL
  26. MIMVEY [Concomitant]
     Active Substance: ESTRADIOL\NORETHINDRONE ACETATE

REACTIONS (3)
  - Injection site rash [Unknown]
  - Injection site discolouration [Unknown]
  - Injection site pain [Unknown]
